FAERS Safety Report 6145086-1 (Version None)
Quarter: 2009Q2

REPORT INFORMATION
  Report Type: 
  Country: None (occurrence: None)
  Receive Date: 20090406
  Receipt Date: 20090225
  Transmission Date: 20091009
  Serious: No
  Sender: FDA-Public Use
  Company Number: A0760343A

PATIENT
  Age: 55 Year
  Sex: Female

DRUGS (18)
  1. ADVAIR HFA [Suspect]
     Indication: ASTHMA
     Dosage: 2PUFF TWICE PER DAY
     Route: 055
     Dates: start: 20080901
  2. ALBUTEROL [Concomitant]
  3. COUMADIN [Concomitant]
  4. BAYER [Concomitant]
  5. PREVACID [Concomitant]
  6. ANTARA (MICRONIZED) [Concomitant]
  7. ZOCOR [Concomitant]
  8. UNKNOWN MEDICATION [Concomitant]
  9. CLONAZEPAM [Concomitant]
  10. VALIUM [Concomitant]
  11. CALCIUM [Concomitant]
  12. MULTI-VITAMIN [Concomitant]
  13. VITAMIN B-12 [Concomitant]
  14. MAGNESIUM SULFATE [Concomitant]
  15. POTASSIUM CHLORIDE [Concomitant]
  16. FLU SHOT [Concomitant]
  17. FISH OIL [Concomitant]
  18. PNEUMONIA SHOT [Concomitant]

REACTIONS (4)
  - DRUG INEFFECTIVE [None]
  - DYSPHONIA [None]
  - MUSCLE SPASMS [None]
  - PRODUCT QUALITY ISSUE [None]
